FAERS Safety Report 11922896 (Version 1)
Quarter: 2016Q1

REPORT INFORMATION
  Report Type: Spontaneous
  Country: US (occurrence: US)
  Receive Date: 20160116
  Receipt Date: 20160116
  Transmission Date: 20160526
  Serious: No
  Sender: FDA-Public Use
  Company Number: US-DEP_08200_2015

PATIENT
  Sex: Male
  Weight: 71.22 kg

DRUGS (4)
  1. NUCYNTA ER [Suspect]
     Active Substance: TAPENTADOL HYDROCHLORIDE
     Indication: BACK INJURY
     Dosage: 100 MG, UNK
     Route: 048
     Dates: start: 201307, end: 2013
  2. OXYCODONE [Concomitant]
     Active Substance: OXYCODONE
     Indication: BACK INJURY
     Dosage: UNK
  3. MORPHINE SULFATE. [Concomitant]
     Active Substance: MORPHINE SULFATE
     Indication: BACK INJURY
     Dosage: UNK
  4. NUCYNTA [Suspect]
     Active Substance: TAPENTADOL HYDROCHLORIDE
     Indication: BACK INJURY
     Dosage: 75 MG, UNK
     Route: 048
     Dates: start: 201307, end: 2013

REACTIONS (1)
  - Back pain [Not Recovered/Not Resolved]
